FAERS Safety Report 23698517 (Version 1)
Quarter: 2024Q2

REPORT INFORMATION
  Report Type: Spontaneous
  Country: FR (occurrence: FR)
  Receive Date: 20240402
  Receipt Date: 20240402
  Transmission Date: 20240716
  Serious: Yes (Hospitalization)
  Sender: FDA-Public Use
  Company Number: None

PATIENT
  Age: 44 Year
  Sex: Female
  Weight: 86 kg

DRUGS (1)
  1. PEGASYS [Suspect]
     Active Substance: PEGINTERFERON ALFA-2A
     Indication: Myeloproliferative neoplasm
     Dosage: 90 MICROGRAM EVERY 1 WEEK(S)
     Route: 058
     Dates: start: 20231120, end: 20231221

REACTIONS (1)
  - Pseudopapilloedema [Recovering/Resolving]

NARRATIVE: CASE EVENT DATE: 20231222
